FAERS Safety Report 20299535 (Version 2)
Quarter: 2022Q2

REPORT INFORMATION
  Report Type: Spontaneous
  Country: AR (occurrence: AR)
  Receive Date: 20220105
  Receipt Date: 20220408
  Transmission Date: 20220720
  Serious: Yes (Other)
  Sender: FDA-Public Use
  Company Number: AR-PFIZER INC-202101850086

PATIENT
  Age: 73 Year
  Sex: Female

DRUGS (2)
  1. IBRANCE [Suspect]
     Active Substance: PALBOCICLIB
     Indication: Breast cancer metastatic
     Dosage: 75 MG, CYCLIC (DAILY 3X1 SCHEME)
     Dates: start: 20200922, end: 202203
  2. LETROZOLE [Concomitant]
     Active Substance: LETROZOLE
     Dosage: UNK

REACTIONS (8)
  - Loss of consciousness [Unknown]
  - Fall [Unknown]
  - Gait inability [Unknown]
  - Decreased immune responsiveness [Unknown]
  - Balance disorder [Unknown]
  - Wound dehiscence [Unknown]
  - Pleural disorder [Unknown]
  - Feeling abnormal [Unknown]
